FAERS Safety Report 9238207 (Version 1)
Quarter: 2013Q2

REPORT INFORMATION
  Report Type: Spontaneous
  Country: DE (occurrence: DE)
  Receive Date: 20130418
  Receipt Date: 20130418
  Transmission Date: 20140414
  Serious: Yes (Life-Threatening, Other)
  Sender: FDA-Public Use
  Company Number: DE-AMGEN-DEUSP2013011581

PATIENT
  Age: 62 Year
  Sex: Female
  Weight: 96 kg

DRUGS (8)
  1. ENBREL [Suspect]
     Indication: PSORIATIC ARTHROPATHY
     Dosage: 50 MG, WEEKLY
     Route: 058
     Dates: start: 20090101, end: 2013
  2. OXYCODONE [Concomitant]
     Dosage: 20 UNK, 1X/DAY
     Route: 048
     Dates: start: 2008
  3. OMEPRAZOLE [Concomitant]
     Indication: GASTRITIS
     Dosage: 40 UNK, QWK
     Route: 048
     Dates: start: 2009
  4. RAMIPRIL [Concomitant]
     Dosage: 10 UNK, 1X/DAY
     Route: 048
     Dates: start: 2009
  5. CALCIUM CARBONATE [Concomitant]
     Dosage: UNK
  6. HCT [Concomitant]
     Indication: BLOOD PRESSURE INCREASED
     Dosage: 25 UNK, 1X/DAY
     Route: 048
     Dates: start: 2011
  7. IBU [Concomitant]
     Indication: PSORIATIC ARTHROPATHY
     Dosage: 600 UNK, 1X/DAY
     Route: 048
     Dates: start: 2012
  8. AMLODIPINE [Concomitant]
     Indication: BLOOD PRESSURE INCREASED
     Dosage: 10 MG, DAILY
     Dates: start: 2011

REACTIONS (10)
  - Heart rate abnormal [Not Recovered/Not Resolved]
  - Joint swelling [Not Recovered/Not Resolved]
  - Pruritus [Not Recovered/Not Resolved]
  - Dyspnoea [Not Recovered/Not Resolved]
  - Oedema peripheral [Not Recovered/Not Resolved]
  - Blood pressure increased [Unknown]
  - Bone loss [Unknown]
  - Tooth loss [Unknown]
  - Pain [Unknown]
  - Hypertension [Unknown]
